FAERS Safety Report 25707357 (Version 1)
Quarter: 2025Q3

REPORT INFORMATION
  Report Type: Spontaneous
  Country: US (occurrence: US)
  Receive Date: 20250820
  Receipt Date: 20250820
  Transmission Date: 20251021
  Serious: No
  Sender: CIPLA
  Company Number: US-CIPLA LTD.-2025US00148

PATIENT

DRUGS (1)
  1. SAJAZIR [Suspect]
     Active Substance: ICATIBANT ACETATE
     Indication: Hereditary angioedema
     Route: 058
     Dates: end: 20250102

REACTIONS (2)
  - Abdominal distension [Not Recovered/Not Resolved]
  - Drug ineffective [Unknown]
